FAERS Safety Report 9904991 (Version 1)
Quarter: 2013Q2

REPORT INFORMATION
  Report Type: Spontaneous
  Country: US (occurrence: None)
  Receive Date: 20130627
  Receipt Date: 20130627
  Transmission Date: 20140414
  Serious: No
  Sender: FDA-Public Use
  Company Number: 1000044447

PATIENT
  Age: 94 Year
  Sex: Male

DRUGS (5)
  1. LINZESS (LINACLOTIDE) (145 MICROGRAM, CAPSULES) [Suspect]
     Indication: CONSTIPATION
     Route: 048
     Dates: start: 20130417
  2. ASPIRIN (ACETYLSALICYLIC ACID) (ACETYLSALICYLIC ACID) [Concomitant]
  3. OMEPRAZOLE (OMEPRAZOLE) (OMEPRAZOLE) [Concomitant]
  4. MICARDIS (TELMISARTAN) (TELMISARTAN) [Concomitant]
  5. VESICARE (SOLIFENACIN SUCCINATE) (SOLIFENACIN SUCCINATE) [Concomitant]

REACTIONS (1)
  - Medication error [None]
